FAERS Safety Report 25369691 (Version 2)
Quarter: 2025Q3

REPORT INFORMATION
  Report Type: Spontaneous
  Country: EU (occurrence: EU)
  Receive Date: 20250528
  Receipt Date: 20250716
  Transmission Date: 20251020
  Serious: Yes (Disabling, Other)
  Sender: NOVARTIS
  Company Number: EU-002147023-NVSC2025NL083674

PATIENT
  Age: 20 Month
  Sex: Female
  Weight: 4 kg

DRUGS (1)
  1. ZOLGENSMA [Suspect]
     Active Substance: ONASEMNOGENE ABEPARVOVEC-XIOI
     Indication: Spinal muscular atrophy
     Route: 042
     Dates: start: 20231010, end: 20231010

REACTIONS (4)
  - Motor developmental delay [Not Recovered/Not Resolved]
  - Psychomotor skills impaired [Unknown]
  - Muscular weakness [Unknown]
  - Treatment failure [Not Recovered/Not Resolved]
